FAERS Safety Report 5772526-X (Version None)
Quarter: 2008Q2

REPORT INFORMATION
  Report Type: 
  Country: None (occurrence: None)
  Receive Date: 20080610
  Receipt Date: 20080530
  Transmission Date: 20081010
  Serious: Yes (Hospitalization)
  Sender: FDA-Public Use
  Company Number: 2005BI007875

PATIENT
  Age: 57 Year
  Sex: Male
  Weight: 56.6996 kg

DRUGS (1)
  1. AVONEX [Suspect]
     Indication: MULTIPLE SCLEROSIS
     Dosage: 30 UG;QW;IM
     Route: 030
     Dates: start: 20050101

REACTIONS (5)
  - ASTHENIA [None]
  - NASAL CAVITY CANCER [None]
  - NASAL ODOUR [None]
  - RHINORRHOEA [None]
  - SKIN GRAFT [None]
